FAERS Safety Report 6235310-9 (Version None)
Quarter: 2009Q2

REPORT INFORMATION
  Report Type: 
  Country: None (occurrence: None)
  Receive Date: 20090618
  Receipt Date: 20090612
  Transmission Date: 20091009
  Serious: Yes (Hospitalization, Other)
  Sender: FDA-Public Use
  Company Number: US-ABBOTT-09P-163-0579540-00

PATIENT
  Sex: Female
  Weight: 90.8 kg

DRUGS (4)
  1. HUMIRA [Suspect]
     Indication: CROHN'S DISEASE
     Route: 058
     Dates: start: 20071115
  2. IMURAN [Concomitant]
     Indication: CROHN'S DISEASE
  3. PREDNISONE [Concomitant]
     Indication: CROHN'S DISEASE
     Dosage: 60 MG QD
     Route: 048
     Dates: start: 20090501
  4. PREDNISONE [Concomitant]
     Dosage: 30MG QD
     Route: 048

REACTIONS (10)
  - ABDOMINAL PAIN [None]
  - ABDOMINAL PAIN LOWER [None]
  - CROHN'S DISEASE [None]
  - DIARRHOEA [None]
  - FATIGUE [None]
  - HYSTERECTOMY [None]
  - INTESTINAL STENOSIS [None]
  - NAUSEA [None]
  - VOMITING [None]
  - WEIGHT DECREASED [None]
